FAERS Safety Report 6208950-0 (Version None)
Quarter: 2009Q2

REPORT INFORMATION
  Report Type: 
  Country: None (occurrence: None)
  Receive Date: 20090529
  Receipt Date: 20090526
  Transmission Date: 20091009
  Serious: Yes (Hospitalization)
  Sender: FDA-Public Use
  Company Number: US-B.I. PHARMACEUTICALS,INC./RIDGEFIELD-2009-BP-06500BP

PATIENT
  Sex: Female

DRUGS (5)
  1. SPIRIVA [Suspect]
     Indication: COUGH
     Dosage: 18MCG
     Route: 055
     Dates: start: 20060101
  2. COMBIVENT [Suspect]
     Indication: COUGH
  3. NEXIUM [Concomitant]
     Indication: DYSPEPSIA
  4. LOPRESSOR [Concomitant]
     Indication: HYPERTENSION
  5. HIGH CHOLESTEROL MED [Concomitant]
     Indication: BLOOD CHOLESTEROL INCREASED

REACTIONS (4)
  - BLOOD POTASSIUM DECREASED [None]
  - COUGH [None]
  - PANCREATITIS [None]
  - REGURGITATION [None]
